FAERS Safety Report 8248943 (Version 2)
Quarter: 2013Q1

REPORT INFORMATION
  Report Type: Spontaneous
  Country: DE (occurrence: DE)
  Receive Date: 20111117
  Receipt Date: 20130118
  Transmission Date: 20140127
  Serious: Yes (Death, Other)
  Sender: FDA-Public Use
  Company Number: DE-ROCHE-1006768

PATIENT
  Age: 62 Year
  Sex: Female
  Weight: 59 kg

DRUGS (9)
  1. RITUXIMAB [Suspect]
     Indication: CHRONIC LYMPHOCYTIC LEUKAEMIA
     Route: 042
     Dates: start: 20101013, end: 20101110
  2. BENDAMUSTINE [Suspect]
     Indication: CHRONIC LYMPHOCYTIC LEUKAEMIA
     Route: 042
     Dates: start: 20101014, end: 20101110
  3. RANITIC [Concomitant]
     Route: 065
     Dates: start: 20101014
  4. TAVEGIL [Concomitant]
     Route: 065
     Dates: start: 20101014
  5. PANTOZOL [Concomitant]
     Route: 048
     Dates: start: 20101013
  6. PREDNISONE [Concomitant]
     Route: 048
     Dates: start: 20101013
  7. PARACETAMOL [Concomitant]
     Route: 048
     Dates: start: 20101013
  8. GRANISETRON [Concomitant]
     Route: 042
     Dates: start: 20101014
  9. DEXAMETHASON [Concomitant]
     Route: 042
     Dates: start: 20101014

REACTIONS (6)
  - Non-small cell lung cancer [Fatal]
  - Metastases to central nervous system [Not Recovered/Not Resolved]
  - Metastases to liver [Not Recovered/Not Resolved]
  - Metastases to soft tissue [Not Recovered/Not Resolved]
  - Cytokine release syndrome [Unknown]
  - Back pain [Unknown]
